FAERS Safety Report 10168652 (Version 3)
Quarter: 2014Q3

REPORT INFORMATION
  Report Type: Spontaneous
  Country: GB (occurrence: None)
  Receive Date: 20140509
  Receipt Date: 20140708
  Transmission Date: 20150326
  Serious: Yes (Disabling, Other)
  Sender: FDA-Public Use
  Company Number: AUR-APL-2014-05241

PATIENT
  Age: 51 Year
  Sex: Female
  Weight: 97 kg

DRUGS (1)
  1. RAMIPRIL. [Suspect]
     Active Substance: RAMIPRIL
     Indication: ESSENTIAL HYPERTENSION
     Route: 048
     Dates: start: 20140207, end: 20140318

REACTIONS (21)
  - Headache [None]
  - Dyspnoea [None]
  - Skin odour abnormal [None]
  - Wheezing [None]
  - Activities of daily living impaired [None]
  - Decreased appetite [None]
  - Cough [None]
  - Ageusia [None]
  - Viral infection [None]
  - Deafness [None]
  - Productive cough [None]
  - Rhinorrhoea [None]
  - Lethargy [None]
  - Parosmia [None]
  - Anosmia [None]
  - Lower respiratory tract infection [None]
  - Stress urinary incontinence [None]
  - Blood pressure increased [None]
  - Suicidal ideation [None]
  - Malaise [None]
  - General physical health deterioration [None]

NARRATIVE: CASE EVENT DATE: 20140214
